FAERS Safety Report 9513481 (Version 1)
Quarter: 2013Q3

REPORT INFORMATION
  Report Type: Spontaneous
  Country: US (occurrence: US)
  Receive Date: 20130910
  Receipt Date: 20130910
  Transmission Date: 20140515
  Serious: No
  Sender: FDA-Public Use
  Company Number: US-TARO-2013P1004893

PATIENT
  Sex: Female

DRUGS (2)
  1. WARFARIN SODIUM TABLETS USP 2MG [Suspect]
     Dates: end: 201304
  2. WARFARIN SODIUM TABLETS USP 2MG [Suspect]
     Dates: start: 201304

REACTIONS (1)
  - International normalised ratio abnormal [Unknown]
